FAERS Safety Report 22298295 (Version 8)
Quarter: 2023Q4

REPORT INFORMATION
  Report Type: Report from Study
  Country: CR (occurrence: CR)
  Receive Date: 20230509
  Receipt Date: 20231016
  Transmission Date: 20240110
  Serious: Yes (Life-Threatening, Other)
  Sender: FDA-Public Use
  Company Number: CR-002147023-NVSC2023CR026865

PATIENT
  Age: 68 Year
  Sex: Female

DRUGS (6)
  1. KISQALI [Suspect]
     Active Substance: RIBOCICLIB
     Indication: Breast cancer
     Dosage: 600 MG, QD
     Route: 048
     Dates: start: 20221111
  2. KISQALI [Suspect]
     Active Substance: RIBOCICLIB
     Dosage: 600 MG, QD
     Route: 048
     Dates: start: 20221125
  3. KISQALI [Suspect]
     Active Substance: RIBOCICLIB
     Dosage: 600 MG, QD
     Route: 048
     Dates: start: 20221221
  4. KISQALI [Suspect]
     Active Substance: RIBOCICLIB
     Dosage: 600 MG, QD
     Route: 048
     Dates: start: 202212
  5. ZOMETA [Suspect]
     Active Substance: ZOLEDRONIC ACID
     Indication: Bone cancer
     Dosage: UNK UNK, Q3MO
     Route: 065
  6. FULVESTRANT [Suspect]
     Active Substance: FULVESTRANT
     Indication: Product used for unknown indication
     Dosage: UNK
     Route: 065

REACTIONS (44)
  - Hypersensitivity [Unknown]
  - Diabetes mellitus [Unknown]
  - Renal failure [Unknown]
  - Chills [Not Recovered/Not Resolved]
  - Food intolerance [Unknown]
  - Hypoglycaemia [Unknown]
  - Weight decreased [Unknown]
  - Pain [Recovering/Resolving]
  - Discomfort [Unknown]
  - Ageusia [Unknown]
  - Breath odour [Unknown]
  - Anonychia [Unknown]
  - Saliva altered [Unknown]
  - Oropharyngeal discomfort [Unknown]
  - Dysphonia [Unknown]
  - Bone pain [Unknown]
  - Blister [Unknown]
  - Skin disorder [Unknown]
  - Scratch [Unknown]
  - Alopecia [Unknown]
  - Pain in extremity [Unknown]
  - Mass [Unknown]
  - Facial pain [Unknown]
  - Insomnia [Unknown]
  - Thyroid disorder [Unknown]
  - Drug intolerance [Unknown]
  - Malaise [Unknown]
  - Blood triglycerides decreased [Unknown]
  - Blood glucose decreased [Unknown]
  - Blood cholesterol decreased [Unknown]
  - Oedema peripheral [Not Recovered/Not Resolved]
  - Productive cough [Unknown]
  - Dysgeusia [Unknown]
  - Pruritus [Unknown]
  - Decreased appetite [Unknown]
  - Erythema [Unknown]
  - Pyrexia [Unknown]
  - Dry skin [Unknown]
  - Vomiting [Unknown]
  - Diarrhoea [Recovering/Resolving]
  - Dyspepsia [Recovering/Resolving]
  - Asthenia [Unknown]
  - Influenza [Unknown]
  - Inappropriate schedule of product administration [Unknown]

NARRATIVE: CASE EVENT DATE: 20221111
